FAERS Safety Report 9176476 (Version 1)
Quarter: 2013Q1

REPORT INFORMATION
  Report Type: Spontaneous
  Country: FR (occurrence: FR)
  Receive Date: 20130321
  Receipt Date: 20130321
  Transmission Date: 20140127
  Serious: Yes (Hospitalization)
  Sender: FDA-Public Use
  Company Number: FR-AMGEN-FRASP2013019024

PATIENT
  Age: 46 Year
  Sex: Female

DRUGS (3)
  1. ENBREL [Suspect]
     Indication: RHEUMATOID ARTHRITIS
     Dosage: 1 DF, WEEKLY
     Route: 058
     Dates: start: 20090225, end: 201210
  2. METHOTREXATE [Concomitant]
     Dosage: 5 MG, WEEKLY
     Route: 048
     Dates: start: 2008, end: 201210
  3. SPECIAFOLDINE [Concomitant]
     Dosage: 5 MG, WEEKLY
     Route: 048
     Dates: start: 2008, end: 201210

REACTIONS (1)
  - Invasive ductal breast carcinoma [Not Recovered/Not Resolved]
